FAERS Safety Report 6587835-4 (Version None)
Quarter: 2010Q1

REPORT INFORMATION
  Report Type: 
  Country: None (occurrence: None)
  Receive Date: 20100218
  Receipt Date: 20100215
  Transmission Date: 20100710
  Serious: Yes (Life-Threatening, Hospitalization, Other)
  Sender: FDA-Public Use
  Company Number: PHHY2009IE47685

PATIENT
  Sex: Male
  Weight: 79.365 kg

DRUGS (3)
  1. CLOZARIL [Suspect]
     Indication: SCHIZOPHRENIA
     Dosage: UNK
     Dates: start: 20091019
  2. CLOZARIL [Suspect]
     Dosage: UNK
     Route: 048
     Dates: start: 20091022, end: 20091028
  3. PROCYCLIDINE HYDROCHLORIDE 2MG TAB [Concomitant]
     Indication: EXTRAPYRAMIDAL DISORDER
     Dosage: 5 MG QDS
     Route: 048
     Dates: start: 20090914, end: 20090928

REACTIONS (7)
  - CIRCULATORY COLLAPSE [None]
  - LOSS OF CONSCIOUSNESS [None]
  - MENINGITIS [None]
  - MYOCARDITIS [None]
  - STAPHYLOCOCCAL INFECTION [None]
  - TONSILLITIS [None]
  - WHITE BLOOD CELL COUNT INCREASED [None]
